FAERS Safety Report 16701668 (Version 2)
Quarter: 2019Q3

REPORT INFORMATION
  Report Type: Spontaneous
  Country: US (occurrence: US)
  Receive Date: 20190814
  Receipt Date: 20190820
  Transmission Date: 20191004
  Serious: Yes (Other)
  Sender: FDA-Public Use
  Company Number: US-PFIZER INC-2019345511

PATIENT
  Age: 63 Year
  Sex: Female
  Weight: 107.5 kg

DRUGS (3)
  1. CELEBREX [Suspect]
     Active Substance: CELECOXIB
     Indication: OSTEOARTHRITIS
  2. CELEBREX [Suspect]
     Active Substance: CELECOXIB
     Indication: ARTHRALGIA
     Dosage: 200 MG, 2X/DAY [ONE 200MG CAPSULE TWO TIMES DAILY BY MOUTH]
     Route: 048
     Dates: start: 201606
  3. LYRICA [Suspect]
     Active Substance: PREGABALIN
     Dosage: 150 MG, 2X/DAY [TWO 75 MG CAPSULES BY MOUTH TWICE PER DAY]
     Route: 048

REACTIONS (3)
  - Systemic lupus erythematosus [Unknown]
  - Condition aggravated [Unknown]
  - Lupus nephritis [Unknown]
